FAERS Safety Report 24959676 (Version 1)
Quarter: 2025Q1

REPORT INFORMATION
  Report Type: Spontaneous
  Country: US (occurrence: None)
  Receive Date: 20250211
  Receipt Date: 20250211
  Transmission Date: 20250409
  Serious: Yes (Death)
  Sender: FDA-CTU
  Company Number: None

PATIENT
  Age: 57 Year

DRUGS (4)
  1. TACROLIMUS [Suspect]
     Active Substance: TACROLIMUS
     Indication: Liver transplant
     Route: 048
     Dates: start: 20241010
  2. MYCOPHENOLATE MOFETIL [Concomitant]
     Active Substance: MYCOPHENOLATE MOFETIL
  3. VELTASSA [Concomitant]
     Active Substance: PATIROMER
  4. VALGANCICLOVIR 450MG TABLETS [Concomitant]

REACTIONS (6)
  - Metabolic acidosis [None]
  - Hypotension [None]
  - Hyperkalaemia [None]
  - Anaemia [None]
  - Arrhythmia [None]
  - Hypoperfusion [None]

NARRATIVE: CASE EVENT DATE: 20241227
